FAERS Safety Report 25523608 (Version 2)
Quarter: 2025Q3

REPORT INFORMATION
  Report Type: Spontaneous
  Country: US (occurrence: US)
  Receive Date: 20250707
  Receipt Date: 20250810
  Transmission Date: 20251021
  Serious: No
  Sender: ALEXION PHARMACEUTICALS
  Company Number: US-AstraZeneca-CH-00900685A

PATIENT
  Age: 39 Year
  Sex: Male
  Weight: 126.09 kg

DRUGS (4)
  1. FASENRA [Suspect]
     Active Substance: BENRALIZUMAB
     Route: 065
  2. FASENRA [Suspect]
     Active Substance: BENRALIZUMAB
  3. ALBUTEROL [Concomitant]
     Active Substance: ALBUTEROL
     Route: 065
  4. PREDNISONE [Concomitant]
     Active Substance: PREDNISONE
     Route: 065

REACTIONS (4)
  - Amnesia [Unknown]
  - Headache [Unknown]
  - Chest pain [Unknown]
  - Hypertension [Unknown]

NARRATIVE: CASE EVENT DATE: 20241001
